FAERS Safety Report 5080512-0 (Version None)
Quarter: 2006Q3

REPORT INFORMATION
  Report Type: 
  Country: None (occurrence: None)
  Receive Date: 20060809
  Receipt Date: 20060731
  Transmission Date: 20061208
  Serious: Yes (Life-Threatening, Other)
  Sender: FDA-Public Use
  Company Number: 2006AL002122

PATIENT
  Age: 38 Year
  Sex: Female

DRUGS (4)
  1. ALPRAZOLAM [Suspect]
     Indication: ANXIETY
     Dosage: PRN; PO
     Route: 048
     Dates: start: 20060202, end: 20060217
  2. CITALOPRAM HYDROBROMIDE [Suspect]
     Indication: DEPRESSION
     Dosage: 20MG; QD; PO
     Route: 048
  3. ERYTHROCINE-ES [Concomitant]
  4. INSULIN [Concomitant]

REACTIONS (1)
  - HYPOGLYCAEMIA [None]
